FAERS Safety Report 7461957-8 (Version None)
Quarter: 2011Q2

REPORT INFORMATION
  Report Type: 
  Country: None (occurrence: None)
  Receive Date: 20110506
  Receipt Date: 20110429
  Transmission Date: 20111010
  Serious: Yes (Other)
  Sender: FDA-Public Use
  Company Number: US-SANOFI-AVENTIS-2011SA026815

PATIENT
  Age: 89 Year
  Sex: Male

DRUGS (3)
  1. FEXOFENADINE HCL [Suspect]
     Route: 048
     Dates: start: 20110422
  2. ACETYLCYSTEINE [Concomitant]
     Dates: start: 20110422
  3. ALL OTHER THERAPEUTIC PRODUCTS [Concomitant]
     Dates: start: 20110422

REACTIONS (4)
  - CONFUSIONAL STATE [None]
  - POOR QUALITY SLEEP [None]
  - HALLUCINATION [None]
  - AGITATION [None]
